FAERS Safety Report 7755472 (Version 4)
Quarter: 2019Q1

REPORT INFORMATION
  Report Type: Spontaneous
  Country: GB (occurrence: GB)
  Receive Date: 20110111
  Receipt Date: 20190104
  Transmission Date: 20190418
  Serious: Yes (Other)
  Sender: FDA-Public Use
  Company Number: GB-BRISTOL-MYERS SQUIBB COMPANY-15478605

PATIENT
  Age: 57 Year
  Sex: Female
  Weight: 84 kg

DRUGS (3)
  1. ERBITUX [Suspect]
     Active Substance: CETUXIMAB
     Indication: COLORECTAL CANCER
     Dosage: 9 WK UNTIL TREATMENT BREAK FOR 1 WK,MOST RECENT ON 24DEC10,12TH INFUSION,8OCT10-24DEC10,7JAN11-ONG
     Route: 042
     Dates: start: 20101008
  2. OXALIPLATIN. [Suspect]
     Active Substance: OXALIPLATIN
     Indication: COLORECTAL CANCER
     Dosage: 9 WEEKS UNTIL TREATMENT BREAK FOR 1 WK,MOST RECENTLY ON 10DEC10,UNK-10DEC10,07JAN2011-ONG
     Route: 042
  3. CAPECITABINE. [Suspect]
     Active Substance: CAPECITABINE
     Indication: COLORECTAL CANCER
     Dosage: 9 WK UNTIL TREAT BREAK FOR 1 WK,RECENTLY 24DEC10,UNK-24DEC10,25%DOSE REDUCTION:07JAN11-ONG(750MG/M2
     Route: 048

REACTIONS (2)
  - Platelet count decreased [Unknown]
  - Palmar-plantar erythrodysaesthesia syndrome [Recovered/Resolved]

NARRATIVE: CASE EVENT DATE: 20101230
